FAERS Safety Report 25400530 (Version 1)
Quarter: 2025Q2

REPORT INFORMATION
  Report Type: Spontaneous
  Country: US (occurrence: None)
  Receive Date: 20250604
  Receipt Date: 20250604
  Transmission Date: 20250717
  Serious: No
  Sender: FDA-CTU
  Company Number: None

PATIENT
  Sex: Female

DRUGS (1)
  1. VIGABATRIN [Suspect]
     Active Substance: VIGABATRIN
     Indication: Infantile spasms
     Dosage: FREQUENCY : TWICE A DAY;?
     Route: 048
     Dates: start: 20241213, end: 20250526

REACTIONS (4)
  - Hypersomnia [None]
  - Photosensitivity reaction [None]
  - Altered state of consciousness [None]
  - Visual impairment [None]

NARRATIVE: CASE EVENT DATE: 20250522
